FAERS Safety Report 23333214 (Version 1)
Quarter: 2023Q4

REPORT INFORMATION
  Report Type: Spontaneous
  Country: US (occurrence: US)
  Receive Date: 20231222
  Receipt Date: 20231222
  Transmission Date: 20240109
  Serious: No
  Sender: FDA-Public Use
  Company Number: US-CTI BIOPHARMA-2023US04271

PATIENT

DRUGS (3)
  1. VONJO [Suspect]
     Active Substance: PACRITINIB
     Indication: Myeloproliferative neoplasm
     Dosage: 200 MG, BID
     Route: 048
     Dates: start: 20230921
  2. ENOXAPARIN [Concomitant]
     Active Substance: ENOXAPARIN
  3. NADOLOL [Concomitant]
     Active Substance: NADOLOL

REACTIONS (3)
  - Product dose omission issue [Unknown]
  - Off label use [Unknown]
  - Platelet count decreased [Unknown]
